FAERS Safety Report 21409313 (Version 3)
Quarter: 2022Q4

REPORT INFORMATION
  Report Type: Spontaneous
  Country: SK (occurrence: SK)
  Receive Date: 20221004
  Receipt Date: 20221014
  Transmission Date: 20230112
  Serious: Yes (Hospitalization, Other)
  Sender: FDA-Public Use
  Company Number: SK-PFIZER INC-PV202200075386

PATIENT
  Age: 58 Year

DRUGS (1)
  1. VORICONAZOLE [Suspect]
     Active Substance: VORICONAZOLE
     Dosage: UNK
     Dates: start: 20220810

REACTIONS (2)
  - Pulmonary oedema [Unknown]
  - Lung opacity [Unknown]

NARRATIVE: CASE EVENT DATE: 20220815
